FAERS Safety Report 12876084 (Version 1)
Quarter: 2016Q4

REPORT INFORMATION
  Report Type: Spontaneous
  Country: US (occurrence: US)
  Receive Date: 20161024
  Receipt Date: 20161024
  Transmission Date: 20170207
  Serious: No
  Sender: FDA-Public Use
  Company Number: US-JAZZ-2016-US-015378

PATIENT
  Age: 53 Year
  Sex: Female

DRUGS (30)
  1. XYREM [Suspect]
     Active Substance: SODIUM OXYBATE
     Indication: NARCOLEPSY
     Dosage: 2.25 G, BID
     Route: 048
     Dates: start: 201009, end: 201009
  2. ALLEGRA [Concomitant]
     Active Substance: FEXOFENADINE HYDROCHLORIDE
  3. LANTUS [Concomitant]
     Active Substance: INSULIN GLARGINE
  4. CALTRATE WITH VITAMIN D [Concomitant]
     Active Substance: CALCIUM CARBONATE\CHOLECALCIFEROL
  5. GAVISCON ES [Concomitant]
  6. KLOR-CON M10 [Concomitant]
     Active Substance: POTASSIUM CHLORIDE
  7. LASIX [Concomitant]
     Active Substance: FUROSEMIDE
  8. HYDROCODONE / IBUPROFEN [Concomitant]
     Active Substance: HYDROCODONE BITARTRATE\IBUPROFEN
  9. PAXIL [Concomitant]
     Active Substance: PAROXETINE HYDROCHLORIDE
  10. PRAVASTATIN SODIUM. [Concomitant]
     Active Substance: PRAVASTATIN SODIUM
  11. VITAMIN B12 [Concomitant]
     Active Substance: CYANOCOBALAMIN
  12. GABAPENTIN. [Concomitant]
     Active Substance: GABAPENTIN
  13. HYDROCODONE/ACETAMINOPHEN [Concomitant]
     Active Substance: ACETAMINOPHEN\HYDROCODONE
  14. INDOMETHACIN. [Concomitant]
     Active Substance: INDOMETHACIN
  15. RITALIN [Concomitant]
     Active Substance: METHYLPHENIDATE HYDROCHLORIDE
  16. ALLOPURINOL. [Concomitant]
     Active Substance: ALLOPURINOL
  17. XYREM [Suspect]
     Active Substance: SODIUM OXYBATE
     Dosage: 3.75 G, FIRST DOSE
     Route: 048
     Dates: start: 201605
  18. SYNTHROID [Concomitant]
     Active Substance: LEVOTHYROXINE SODIUM
  19. NEURONTIN [Concomitant]
     Active Substance: GABAPENTIN
  20. PRIMIDONE. [Concomitant]
     Active Substance: PRIMIDONE
  21. XYREM [Suspect]
     Active Substance: SODIUM OXYBATE
     Indication: CATAPLEXY
     Dosage: DOSE ADJUSTMENTS
     Route: 048
     Dates: start: 201009, end: 201605
  22. XYREM [Suspect]
     Active Substance: SODIUM OXYBATE
     Dosage: 3 G, SECOND DOSE
     Route: 048
     Dates: start: 201605
  23. CLONIDINE HCL [Concomitant]
     Active Substance: CLONIDINE HYDROCHLORIDE
  24. INDOMETHACIN. [Concomitant]
     Active Substance: INDOMETHACIN
  25. VENTOLIN HFA [Concomitant]
     Active Substance: ALBUTEROL SULFATE
  26. CARVEDILOL. [Concomitant]
     Active Substance: CARVEDILOL
  27. FLONASE [Concomitant]
     Active Substance: FLUTICASONE PROPIONATE
  28. CARAFATE [Concomitant]
     Active Substance: SUCRALFATE
  29. PROTONIX [Concomitant]
     Active Substance: PANTOPRAZOLE SODIUM
  30. VITAMIN D3 [Concomitant]
     Active Substance: CHOLECALCIFEROL

REACTIONS (1)
  - Biopsy skin [Unknown]

NARRATIVE: CASE EVENT DATE: 20160812
